FAERS Safety Report 6670577-4 (Version None)
Quarter: 2010Q2

REPORT INFORMATION
  Report Type: 
  Country: None (occurrence: None)
  Receive Date: 20100407
  Receipt Date: 20100325
  Transmission Date: 20101027
  Serious: Yes (Hospitalization)
  Sender: FDA-Public Use
  Company Number: ES-RANBAXY-2010RR-32171

PATIENT
  Age: 56 Year
  Sex: Male

DRUGS (4)
  1. IBUPROFEN [Suspect]
     Indication: PAIN
     Dosage: 600 MG, TID
  2. ALIMTA [Suspect]
     Indication: LUNG NEOPLASM MALIGNANT
     Dosage: 500 MG/M2, UNK
     Route: 042
  3. FOLIC ACID [Concomitant]
  4. CYANOCOBALAMIN [Concomitant]

REACTIONS (1)
  - RENAL FAILURE ACUTE [None]
